FAERS Safety Report 21471720 (Version 2)
Quarter: 2022Q4

REPORT INFORMATION
  Report Type: Spontaneous
  Country: US (occurrence: US)
  Receive Date: 20221018
  Receipt Date: 20221201
  Transmission Date: 20230113
  Serious: Yes (Other)
  Sender: FDA-Public Use
  Company Number: US-009507513-2210USA003746

PATIENT
  Age: 73 Year
  Sex: Female

DRUGS (3)
  1. KEYTRUDA [Suspect]
     Active Substance: PEMBROLIZUMAB
     Indication: Lung neoplasm malignant
     Dosage: UNK, EVERY 3 WEEKS (Q3W)
     Route: 042
  2. SYNTHROID [Concomitant]
     Active Substance: LEVOTHYROXINE SODIUM
     Dosage: UNK
  3. DIGOXIN [Concomitant]
     Active Substance: DIGOXIN
     Dosage: UNK

REACTIONS (5)
  - Malignant neoplasm progression [Unknown]
  - Oral candidiasis [Recovering/Resolving]
  - Rash [Unknown]
  - Rash pruritic [Unknown]
  - Weight decreased [Unknown]
